FAERS Safety Report 15951730 (Version 1)
Quarter: 2019Q1

REPORT INFORMATION
  Report Type: Spontaneous
  Country: GB (occurrence: GB)
  Receive Date: 20190211
  Receipt Date: 20190211
  Transmission Date: 20190417
  Serious: Yes (Other)
  Sender: FDA-Public Use
  Company Number: GB-GILEAD-2019-0389386

PATIENT
  Age: 38 Year

DRUGS (4)
  1. EPIRUBICIN;ETOPOSIDE;IFOSFAMIDE;RITUXIMAB [Concomitant]
  2. FLUDARABINE [Concomitant]
     Active Substance: FLUDARABINE PHOSPHATE
  3. CYCLOPHOSPHAMIDE. [Concomitant]
     Active Substance: CYCLOPHOSPHAMIDE
  4. YESCARTA [Suspect]
     Active Substance: AXICABTAGENE CILOLEUCEL
     Indication: DIFFUSE LARGE B-CELL LYMPHOMA
     Route: 042

REACTIONS (2)
  - Cytokine release syndrome [Recovered/Resolved]
  - CAR T-cell-related encephalopathy syndrome [Recovered/Resolved]
